FAERS Safety Report 16208030 (Version 1)
Quarter: 2019Q2

REPORT INFORMATION
  Report Type: Spontaneous
  Country: JP (occurrence: JP)
  Receive Date: 20190417
  Receipt Date: 20190417
  Transmission Date: 20190711
  Serious: Yes (Other)
  Sender: FDA-Public Use
  Company Number: JP-EISAI MEDICAL RESEARCH-EC-2019-054900

PATIENT
  Age: 69 Year
  Sex: Male

DRUGS (2)
  1. HALAVEN [Suspect]
     Active Substance: ERIBULIN MESYLATE
     Indication: MYXOID LIPOSARCOMA
     Dosage: DOSE UNKNOWN
     Route: 041
  2. HALAVEN [Suspect]
     Active Substance: ERIBULIN MESYLATE
     Dosage: DOSE REDUCED
     Route: 041

REACTIONS (2)
  - Febrile neutropenia [Recovered/Resolved]
  - Thrombotic microangiopathy [Recovering/Resolving]
